FAERS Safety Report 17331581 (Version 5)
Quarter: 2020Q2

REPORT INFORMATION
  Report Type: Report from Study
  Country: CA (occurrence: CA)
  Receive Date: 20200128
  Receipt Date: 20200507
  Transmission Date: 20200713
  Serious: Yes (Other)
  Sender: FDA-Public Use
  Company Number: CA-JNJFOC-20200124975

PATIENT
  Age: 20 Year
  Sex: Male
  Weight: 76.2 kg

DRUGS (4)
  1. STELARA [Suspect]
     Active Substance: USTEKINUMAB
     Route: 058
  2. PREDNISOLONE. [Suspect]
     Active Substance: PREDNISOLONE
     Indication: CROHN^S DISEASE
     Dosage: 25ML FOR ONE WEEK AND 5ML EVERY WEEK AFTER
  3. STELARA [Suspect]
     Active Substance: USTEKINUMAB
     Indication: CROHN^S DISEASE
     Route: 042
     Dates: start: 20191120
  4. PREVACID [Concomitant]
     Active Substance: LANSOPRAZOLE
     Indication: PRODUCT USED FOR UNKNOWN INDICATION
     Dosage: FOR A YEAR

REACTIONS (9)
  - Periodontitis [Not Recovered/Not Resolved]
  - Jaw operation [Unknown]
  - Testicular mass [Unknown]
  - Gastroenteritis viral [Unknown]
  - Arthralgia [Recovered/Resolved]
  - Gingivitis [Unknown]
  - Fall [Unknown]
  - Crohn^s disease [Unknown]
  - Urinary tract infection [Recovered/Resolved]

NARRATIVE: CASE EVENT DATE: 2020
